FAERS Safety Report 13008965 (Version 2)
Quarter: 2019Q4

REPORT INFORMATION
  Report Type: Spontaneous
  Country: ES (occurrence: ES)
  Receive Date: 20161208
  Receipt Date: 20191202
  Transmission Date: 20200122
  Serious: Yes (Life-Threatening, Hospitalization, Other)
  Sender: FDA-Public Use
  Company Number: ES-SA-2016SA211626

PATIENT
  Age: 70 Year
  Sex: Male

DRUGS (4)
  1. FAMCICLOVIR. [Concomitant]
     Active Substance: FAMCICLOVIR
     Indication: PROPHYLAXIS
     Dosage: UNK
  2. VALGANCICLOVIR. [Concomitant]
     Active Substance: VALGANCICLOVIR
     Indication: PROPHYLAXIS
     Dosage: UNK
  3. ALEMTUZUMAB [Suspect]
     Active Substance: ALEMTUZUMAB
     Indication: CUTANEOUS T-CELL LYMPHOMA REFRACTORY
     Dosage: 30 MG,TIW
     Route: 058
  4. COTRIMOXAZOLE [Concomitant]
     Active Substance: SULFAMETHOXAZOLE\TRIMETHOPRIM
     Indication: PROPHYLAXIS
     Dosage: UNK

REACTIONS (3)
  - Cardiac failure [Recovered/Resolved]
  - Neutropenia [Recovered/Resolved]
  - Off label use [Unknown]
